FAERS Safety Report 6344819-9 (Version None)
Quarter: 2009Q3

REPORT INFORMATION
  Report Type: 
  Country: None (occurrence: None)
  Receive Date: 20090904
  Receipt Date: 20090824
  Transmission Date: 20100115
  Serious: Yes (Death)
  Sender: FDA-Public Use
  Company Number: A-432

PATIENT
  Age: 80 Year
  Sex: Male
  Weight: 65.7716 kg

DRUGS (6)
  1. ALBUTEROL SULFATE [Suspect]
     Dosage: 1X  PER DAY VIA NEBULIZER
     Dates: start: 20090604, end: 20090609
  2. .......................... [Concomitant]
  3. IPRATROPIUM BROMIDE [Suspect]
     Dosage: 1X PER DAY VIA NEBULIZER
     Dates: start: 20090604, end: 20090609
  4. ROXANOL [Concomitant]
  5. TYLENOL (SUPPOSITORY) [Concomitant]
  6. IRON SUPPLEMENTS [Concomitant]

REACTIONS (8)
  - BLOOD PRESSURE INCREASED [None]
  - BRONCHOSPASM [None]
  - EYE IRRITATION [None]
  - FLUSHING [None]
  - PALPITATIONS [None]
  - RETCHING [None]
  - THROAT IRRITATION [None]
  - THROAT TIGHTNESS [None]
